FAERS Safety Report 4785218-0 (Version None)
Quarter: 2005Q3

REPORT INFORMATION
  Report Type: 
  Country: None (occurrence: None)
  Receive Date: 20050930
  Receipt Date: 20050124
  Transmission Date: 20060218
  Serious: Yes (Hospitalization)
  Sender: FDA-Public Use
  Company Number: US-MERCK-0501USA03593

PATIENT
  Age: 86 Year
  Sex: Female

DRUGS (5)
  1. VYTORIN [Suspect]
     Indication: HYPERCHOLESTEROLAEMIA
     Route: 048
     Dates: end: 20050101
  2. NORVASC [Concomitant]
     Route: 065
  3. ASPIRIN [Concomitant]
     Route: 065
  4. VICODIN [Concomitant]
     Route: 065
  5. VISTARIL [Concomitant]
     Route: 065

REACTIONS (17)
  - ADVERSE DRUG REACTION [None]
  - BILE DUCT OBSTRUCTION [None]
  - BUNDLE BRANCH BLOCK LEFT [None]
  - CARDIAC FAILURE CONGESTIVE [None]
  - CHOLELITHIASIS [None]
  - FLUID OVERLOAD [None]
  - HEPATIC CYST [None]
  - HEPATOTOXICITY [None]
  - HYPERTENSION [None]
  - JAUNDICE CHOLESTATIC [None]
  - NEPHRITIS INTERSTITIAL [None]
  - PANCREATIC MASS [None]
  - PANCREATITIS ACUTE [None]
  - PULMONARY HYPERTENSION [None]
  - RENAL ARTERY STENOSIS [None]
  - RENAL CYST [None]
  - RENAL FAILURE ACUTE [None]
